FAERS Safety Report 13051486 (Version 1)
Quarter: 2016Q4

REPORT INFORMATION
  Report Type: Spontaneous
  Country: US (occurrence: US)
  Receive Date: 20161221
  Receipt Date: 20161221
  Transmission Date: 20170207
  Serious: No
  Sender: FDA-Public Use
  Company Number: US-NOVOPROD-481311

PATIENT
  Age: 56 Year
  Sex: Female

DRUGS (1)
  1. LEVEMIR [Suspect]
     Active Substance: INSULIN DETEMIR
     Indication: PRODUCT USED FOR UNKNOWN INDICATION
     Route: 058

REACTIONS (9)
  - Eye swelling [Unknown]
  - Pruritus [Unknown]
  - Sunburn [Unknown]
  - Vision blurred [Unknown]
  - Paranasal sinus discomfort [Unknown]
  - Swelling face [Unknown]
  - Blister [Unknown]
  - Influenza like illness [Unknown]
  - Diarrhoea [Unknown]
